FAERS Safety Report 8001344-7 (Version None)
Quarter: 2011Q4

REPORT INFORMATION
  Report Type: 
  Country: None (occurrence: None)
  Receive Date: 20111222
  Receipt Date: 20111220
  Transmission Date: 20120403
  Serious: Yes (Hospitalization, Other)
  Sender: FDA-Public Use
  Company Number: SE-PFIZER INC-2011308197

PATIENT
  Age: 32 Year
  Sex: Male

DRUGS (3)
  1. LYRICA [Suspect]
     Indication: DEPRESSIVE SYMPTOM
     Dosage: 600 MG DAILY
     Route: 048
     Dates: start: 20111111, end: 20111112
  2. ALPRAZOLAM [Concomitant]
     Indication: DEPRESSIVE SYMPTOM
     Dosage: UNK
  3. VENLAFAXINE [Concomitant]
     Indication: DEPRESSIVE SYMPTOM
     Dosage: UNK

REACTIONS (5)
  - CONVULSION [None]
  - FALL [None]
  - DAYDREAMING [None]
  - BALANCE DISORDER [None]
  - WOUND [None]
